FAERS Safety Report 17567143 (Version 1)
Quarter: 2020Q1

REPORT INFORMATION
  Report Type: Report from Study
  Country: BR (occurrence: BR)
  Receive Date: 20200320
  Receipt Date: 20200320
  Transmission Date: 20200409
  Serious: Yes (Other)
  Sender: FDA-Public Use
  Company Number: BR-SHIRE-BR202010032

PATIENT

DRUGS (1)
  1. HUMAN IMMUNOGLOBULIN; HYALURONIDASE [Suspect]
     Active Substance: HUMAN IMMUNOGLOBULIN G\HYALURONIDASE RECOMBINANT HUMAN
     Indication: PRIMARY IMMUNODEFICIENCY SYNDROME
     Dosage: 25 GRAM, EVERY 21 DAYS
     Route: 058

REACTIONS (6)
  - Adverse drug reaction [Recovering/Resolving]
  - Inappropriate schedule of product administration [Recovering/Resolving]
  - Hypoaesthesia [Recovering/Resolving]
  - Therapeutic response unexpected [Recovering/Resolving]
  - Neoplasm malignant [Recovering/Resolving]
  - Therapeutic response decreased [Recovering/Resolving]
